FAERS Safety Report 5860287-5 (Version None)
Quarter: 2008Q3

REPORT INFORMATION
  Report Type: 
  Country: None (occurrence: None)
  Receive Date: 20080827
  Receipt Date: 20080806
  Transmission Date: 20090109
  Serious: Yes (Other)
  Sender: FDA-Public Use
  Company Number: US-ASTRAZENECA-2008UW16044

PATIENT
  Age: 55 Year
  Sex: Female
  Weight: 93.4 kg

DRUGS (3)
  1. ARIMIDEX [Suspect]
     Indication: BREAST CANCER STAGE II
     Route: 048
     Dates: start: 20030101
  2. ARIMIDEX [Suspect]
     Indication: MALIGNANT MELANOMA
     Route: 048
     Dates: start: 20030101
  3. ALBUTEROL [Concomitant]
     Route: 055

REACTIONS (3)
  - ARTHRITIS [None]
  - ASTHMA [None]
  - SHOULDER OPERATION [None]
